FAERS Safety Report 9227790 (Version 1)
Quarter: 2013Q2

REPORT INFORMATION
  Report Type: Spontaneous
  Country: RO (occurrence: None)
  Receive Date: 20130410
  Receipt Date: 20130410
  Transmission Date: 20140414
  Serious: Yes (Hospitalization)
  Sender: FDA-Public Use
  Company Number: AUR-APL-2013-02893

PATIENT
  Age: 45 Year
  Sex: Male

DRUGS (14)
  1. MIRTAZAPINE (MIRTAZAPINE) [Suspect]
     Indication: ANTIDEPRESSANT THERAPY
  2. XANAX (ALPRAZOLAM) [Suspect]
     Indication: DEPRESSION
     Dates: start: 1997
  3. SERTRALINE HCL [Suspect]
     Indication: ANTIDEPRESSANT THERAPY
     Dates: start: 1997
  4. RISPERIDONE (RISPERIDONE) [Suspect]
     Indication: PSYCHOTIC DISORDER
  5. SEROQUEL (QUETIAPINE FUMARATE) [Suspect]
     Indication: PSYCHOTIC DISORDER
  6. RIVOTRIL (CLONAZEPAM) [Suspect]
     Indication: ANXIOLYTIC THERAPY
  7. ZYPREXA (OLANZAPINE) [Suspect]
     Indication: PSYCHOTIC DISORDER
  8. ORFIRIL [Suspect]
     Indication: AFFECTIVE DISORDER
  9. DIAZEPAM (DIAZEPAM) [Suspect]
     Indication: ANXIOLYTIC THERAPY
  10. VALPROIC ACID (VALPROIC ACID) [Suspect]
     Indication: AFFECTIVE DISORDER
  11. LEXOTAN [Suspect]
     Indication: ANXIOLYTIC THERAPY
  12. LEVOMEPROMAZINE [Suspect]
     Indication: SEDATIVE THERAPY
     Dosage: 1/4 TABLET
  13. DEPAKINE CHRONO [Suspect]
     Indication: AFFECTIVE DISORDER
  14. BROMAZEPAM (BROMAZEPAM) [Suspect]
     Indication: ANXIOLYTIC THERAPY

REACTIONS (21)
  - Depression [None]
  - Anxiety [None]
  - Insomnia [None]
  - Psychomotor hyperactivity [None]
  - Logorrhoea [None]
  - Disinhibition [None]
  - Tachyphrenia [None]
  - Irritability [None]
  - Aggression [None]
  - Psychomotor hyperactivity [None]
  - Delusion [None]
  - Self-medication [None]
  - Drug dependence [None]
  - Depressed mood [None]
  - Bladder dilatation [None]
  - Intestinal obstruction [None]
  - Enuresis [None]
  - Mania [None]
  - Substance-induced mood disorder [None]
  - Condition aggravated [None]
  - No therapeutic response [None]
